FAERS Safety Report 12089988 (Version 1)
Quarter: 2016Q1

REPORT INFORMATION
  Report Type: Report from Study
  Country: GR (occurrence: GR)
  Receive Date: 20160218
  Receipt Date: 20160218
  Transmission Date: 20160526
  Serious: No
  Sender: FDA-Public Use
  Company Number: PHHY2016GR020750

PATIENT
  Age: 74 Year
  Sex: Male

DRUGS (7)
  1. CARVEDILEN [Concomitant]
     Indication: CORONARY ANGIOPLASTY
  2. NORVASC [Concomitant]
     Active Substance: AMLODIPINE BESYLATE
     Indication: CORONARY ANGIOPLASTY
  3. NORVASC [Concomitant]
     Active Substance: AMLODIPINE BESYLATE
     Indication: CORONARY ARTERY DISEASE
     Dosage: 10 MG, UNK
     Route: 065
     Dates: start: 20131217
  4. NORVASC [Concomitant]
     Active Substance: AMLODIPINE BESYLATE
     Indication: HYPERTENSION
  5. CARVEDILEN [Concomitant]
     Indication: CORONARY ARTERY DISEASE
     Dosage: 125 MG, UNK
     Route: 065
     Dates: start: 20131217
  6. CARVEDILEN [Concomitant]
     Indication: HYPERTENSION
  7. TASIGNA [Suspect]
     Active Substance: NILOTINIB
     Indication: CHRONIC MYELOID LEUKAEMIA
     Dosage: 600 MG, QD
     Route: 048
     Dates: start: 20140118

REACTIONS (1)
  - Dyspnoea [Recovered/Resolved]

NARRATIVE: CASE EVENT DATE: 20160109
